FAERS Safety Report 6266295-7 (Version None)
Quarter: 2009Q3

REPORT INFORMATION
  Report Type: 
  Country: None (occurrence: None)
  Receive Date: 20090713
  Receipt Date: 20090701
  Transmission Date: 20100115
  Serious: Yes (Other)
  Sender: FDA-Public Use
  Company Number: PHHY2009US26565

PATIENT
  Age: 60 Year
  Sex: Female

DRUGS (3)
  1. CYCLOSPORINE [Suspect]
     Indication: RENAL TRANSPLANT
     Dosage: UNK
  2. MYCOPHENOLATE MOFETIL [Suspect]
     Indication: RENAL TRANSPLANT
     Dosage: UNK
  3. PREDNISONE [Suspect]
     Indication: SARCOIDOSIS
     Dosage: HIGH-DOSE

REACTIONS (3)
  - CALCIPHYLAXIS [None]
  - ERYTHEMA [None]
  - SKIN ULCER [None]
